FAERS Safety Report 4616983-0 (Version None)
Quarter: 2005Q2

REPORT INFORMATION
  Report Type: 
  Country: None (occurrence: None)
  Receive Date: 20050311
  Receipt Date: 20041220
  Transmission Date: 20051028
  Serious: No
  Sender: FDA-Public Use
  Company Number: 2004-BP-14090BP

PATIENT
  Age: 77 Year
  Sex: Male

DRUGS (5)
  1. SPIRIVA [Suspect]
     Indication: CHRONIC OBSTRUCTIVE PULMONARY DISEASE
     Dosage: 18 MCG (18 MCG, 18 IN 1 D), IH
     Route: 055
     Dates: start: 20041101, end: 20041213
  2. SEREVENT [Concomitant]
  3. FLOMAX [Concomitant]
  4. AVODART [Concomitant]
  5. NEXIUM [Concomitant]

REACTIONS (1)
  - VISION BLURRED [None]
